FAERS Safety Report 8011418-2 (Version None)
Quarter: 2011Q4

REPORT INFORMATION
  Report Type: 
  Country: None (occurrence: None)
  Receive Date: 20111228
  Receipt Date: 20111219
  Transmission Date: 20120403
  Serious: Yes (Death)
  Sender: FDA-Public Use
  Company Number: US-PFIZER INC-2011308890

PATIENT
  Age: 57 Year
  Sex: Male

DRUGS (3)
  1. IBUPROFEN [Suspect]
  2. ACETYLSALICYLIC ACID SRT [Suspect]
  3. NAPROXEN [Suspect]

REACTIONS (1)
  - COMPLETED SUICIDE [None]
